FAERS Safety Report 9587087 (Version 1)
Quarter: 2013Q4

REPORT INFORMATION
  Report Type: Report from Study
  Country: US (occurrence: US)
  Receive Date: 20131003
  Receipt Date: 20131003
  Transmission Date: 20140711
  Serious: Yes (Hospitalization)
  Sender: FDA-Public Use
  Company Number: US-JNJFOC-20131001681

PATIENT
  Age: 19 Year
  Sex: Male
  Weight: 72.8 kg

DRUGS (5)
  1. REMICADE [Suspect]
     Indication: INFLAMMATORY BOWEL DISEASE
     Route: 042
     Dates: start: 20120110, end: 20120726
  2. TYSABRI [Concomitant]
     Indication: INFLAMMATORY BOWEL DISEASE
     Route: 065
     Dates: start: 20120813
  3. 6-MERCAPTOPURINE [Concomitant]
     Indication: INFLAMMATORY BOWEL DISEASE
     Route: 065
  4. LOPERAMIDE [Concomitant]
     Indication: INFLAMMATORY BOWEL DISEASE
     Route: 065
  5. SIMPONI [Concomitant]
     Indication: INFLAMMATORY BOWEL DISEASE
     Route: 058
     Dates: start: 201306

REACTIONS (1)
  - Cellulitis [Recovered/Resolved]
